FAERS Safety Report 4798313-7 (Version None)
Quarter: 2005Q4

REPORT INFORMATION
  Report Type: 
  Country: None (occurrence: None)
  Receive Date: 20051014
  Receipt Date: 20050916
  Transmission Date: 20060501
  Serious: Yes (Hospitalization, Other)
  Sender: FDA-Public Use
  Company Number: GBWYE985416SEP05

PATIENT
  Sex: Female

DRUGS (5)
  1. ENBREL [Suspect]
     Indication: RHEUMATOID ARTHRITIS
     Dosage: UNKNOWN
     Route: 058
     Dates: start: 20031101, end: 20050816
  2. METHOTREXATE [Concomitant]
  3. DELTACORTRIL [Concomitant]
     Dosage: UNKNOWN
     Route: 065
  4. FOSAMAX [Concomitant]
     Dosage: 70 MG WEEKLY
     Route: 065
  5. FOLIC ACID [Concomitant]
     Route: 065

REACTIONS (2)
  - OVARIAN CANCER [None]
  - OVARIAN CYST RUPTURED [None]
